FAERS Safety Report 9500701 (Version 1)
Quarter: 2013Q3

REPORT INFORMATION
  Report Type: Spontaneous
  Country: CN (occurrence: CN)
  Receive Date: 20130905
  Receipt Date: 20130905
  Transmission Date: 20140515
  Serious: Yes (Other)
  Sender: FDA-Public Use
  Company Number: CN-PFIZER INC-2013252767

PATIENT
  Age: 50 Year
  Sex: Male
  Weight: 68 kg

DRUGS (1)
  1. TAZOCIN [Suspect]
     Indication: LUNG INFECTION
     Dosage: 4.5 G, 2X/DAY
     Route: 041
     Dates: start: 20121101, end: 20121101

REACTIONS (5)
  - Hypersensitivity [Recovering/Resolving]
  - Chest discomfort [Recovering/Resolving]
  - Dyspnoea [Recovering/Resolving]
  - Nausea [Recovering/Resolving]
  - Vomiting [Recovering/Resolving]
